FAERS Safety Report 7508604-4 (Version None)
Quarter: 2011Q2

REPORT INFORMATION
  Report Type: 
  Country: None (occurrence: None)
  Receive Date: 20110527
  Receipt Date: 20110103
  Transmission Date: 20111010
  Serious: No
  Sender: FDA-Public Use
  Company Number: A0903476A

PATIENT
  Age: 72 Year
  Sex: Female
  Weight: 67 kg

DRUGS (2)
  1. FLOLAN [Suspect]
     Dosage: 22NGKM CONTINUOUS
     Route: 065
     Dates: start: 20101213
  2. NO CONCURRENT MEDICATIONS [Concomitant]

REACTIONS (2)
  - DIARRHOEA [None]
  - HEADACHE [None]
